FAERS Safety Report 4931747-6 (Version None)
Quarter: 2006Q1

REPORT INFORMATION
  Report Type: 
  Country: None (occurrence: None)
  Receive Date: 20060303
  Receipt Date: 20060126
  Transmission Date: 20060701
  Serious: Yes (Hospitalization, Other)
  Sender: FDA-Public Use
  Company Number: PHBS2006MX01592

PATIENT
  Age: 35 Year
  Sex: Male

DRUGS (4)
  1. CYCLOSPORINE [Suspect]
     Indication: RENAL TRANSPLANT
     Route: 065
     Dates: start: 19961001
  2. AZATHIOPRINE [Concomitant]
     Dates: start: 19961001
  3. PREDNISONE [Concomitant]
     Dates: start: 19961001
  4. GANCICLOVIR [Concomitant]
     Route: 042

REACTIONS (31)
  - ABDOMINAL PAIN [None]
  - ABDOMINAL PAIN UPPER [None]
  - ASTHENIA [None]
  - B-CELL LYMPHOMA [None]
  - BILIARY DILATATION [None]
  - BILIARY SPHINCTEROTOMY [None]
  - BLOOD CREATININE INCREASED [None]
  - CHILLS [None]
  - CHOLECYSTECTOMY [None]
  - CHOLELITHIASIS [None]
  - ENTEROBACTER PNEUMONIA [None]
  - EPSTEIN-BARR VIRUS INFECTION [None]
  - HAEMODIALYSIS [None]
  - HEART RATE INCREASED [None]
  - HYPERLIPIDAEMIA [None]
  - HYPERVENTILATION [None]
  - KIDNEY TRANSPLANT REJECTION [None]
  - LUNG INFILTRATION [None]
  - MURPHY'S SIGN POSITIVE [None]
  - MYALGIA [None]
  - NAUSEA [None]
  - NEPHRECTOMY [None]
  - OXYGEN SATURATION DECREASED [None]
  - PNEUMOCYSTIS JIROVECI PNEUMONIA [None]
  - PNEUMONIA [None]
  - PNEUMONIA BACTERIAL [None]
  - PRODUCTIVE COUGH [None]
  - PYREXIA [None]
  - RENAL NEOPLASM [None]
  - TACHYCARDIA [None]
  - VOMITING [None]
